FAERS Safety Report 10221194 (Version 1)
Quarter: 2014Q2

REPORT INFORMATION
  Report Type: Spontaneous
  Country: US (occurrence: US)
  Receive Date: 20140606
  Receipt Date: 20140606
  Transmission Date: 20141212
  Serious: No
  Sender: FDA-Public Use
  Company Number: US-GLAXOSMITHKLINE-A1063547A

PATIENT
  Age: 71 Year
  Sex: Female

DRUGS (9)
  1. BREO ELLIPTA [Suspect]
     Indication: CHRONIC OBSTRUCTIVE PULMONARY DISEASE
     Dosage: 1PUFF PER DAY
     Route: 055
     Dates: start: 20140220
  2. CARVEDILOL [Concomitant]
  3. ESTROPIPATE [Concomitant]
  4. NORETHINDRONE ACETATE [Concomitant]
  5. SERTRALINE [Concomitant]
  6. OMEPRAZOLE [Concomitant]
  7. CELEBREX [Concomitant]
  8. VITAMINS [Concomitant]
  9. PRO-AIR [Concomitant]

REACTIONS (3)
  - Cough [Not Recovered/Not Resolved]
  - Productive cough [Unknown]
  - Throat irritation [Unknown]
